FAERS Safety Report 4701671-2 (Version None)
Quarter: 2005Q2

REPORT INFORMATION
  Report Type: 
  Country: None (occurrence: None)
  Receive Date: 20050627
  Receipt Date: 20050613
  Transmission Date: 20051028
  Serious: Yes (Other)
  Sender: FDA-Public Use
  Company Number: 2005087380

PATIENT
  Age: 76 Year
  Sex: Male

DRUGS (3)
  1. IDARUBICIN HCL [Suspect]
     Indication: ILL-DEFINED DISORDER
     Dates: start: 20001001
  2. CYTARABINE [Suspect]
     Indication: ILL-DEFINED DISORDER
     Dates: start: 20001001
  3. ISOPTIN [Concomitant]

REACTIONS (1)
  - PULMONARY FIBROSIS [None]
